FAERS Safety Report 6736395-3 (Version None)
Quarter: 2010Q2

REPORT INFORMATION
  Report Type: 
  Country: None (occurrence: None)
  Receive Date: 20100521
  Receipt Date: 20100514
  Transmission Date: 20101027
  Serious: Yes (Other)
  Sender: FDA-Public Use
  Company Number: CA-MERCK-1005USA01725

PATIENT

DRUGS (1)
  1. PROSCAR [Suspect]
     Route: 048

REACTIONS (8)
  - ADVERSE DRUG REACTION [None]
  - BREAST ENLARGEMENT [None]
  - BREAST PAIN [None]
  - DEPRESSION [None]
  - IMPAIRED WORK ABILITY [None]
  - MAMMOGRAM ABNORMAL [None]
  - NEOPLASM MALIGNANT [None]
  - NIPPLE SWELLING [None]
